FAERS Safety Report 16107337 (Version 5)
Quarter: 2020Q3

REPORT INFORMATION
  Report Type: Report from Study
  Country: JP (occurrence: JP)
  Receive Date: 20190322
  Receipt Date: 20200902
  Transmission Date: 20201102
  Serious: Yes (Death, Life-Threatening, Hospitalization)
  Sender: FDA-Public Use
  Company Number: JP-EISAI MEDICAL RESEARCH-EC-2019-053913

PATIENT
  Age: 82 Year
  Sex: Male
  Weight: 68 kg

DRUGS (7)
  1. LENVIMA [Suspect]
     Active Substance: LENVATINIB
     Route: 048
     Dates: start: 20181211, end: 20190324
  2. PREDNISOLONE. [Concomitant]
     Active Substance: PREDNISOLONE
     Indication: MALAISE
     Route: 048
  3. LENVIMA [Suspect]
     Active Substance: LENVATINIB
     Indication: HEPATOCELLULAR CARCINOMA
     Route: 048
     Dates: start: 20180824, end: 20180826
  4. LENVIMA [Suspect]
     Active Substance: LENVATINIB
     Route: 048
     Dates: start: 20190423, end: 20191001
  5. LENVIMA [Suspect]
     Active Substance: LENVATINIB
     Route: 048
     Dates: start: 20180827, end: 20180911
  6. LENVIMA [Suspect]
     Active Substance: LENVATINIB
     Route: 048
     Dates: start: 20180912, end: 20181122
  7. LOPERAMIDE [Concomitant]
     Active Substance: LOPERAMIDE
     Indication: DIARRHOEA
     Route: 048

REACTIONS (2)
  - Cardiac failure [Fatal]
  - Somnolence [Recovered/Resolved]

NARRATIVE: CASE EVENT DATE: 20181121
